FAERS Safety Report 18833613 (Version 1)
Quarter: 2021Q1

REPORT INFORMATION
  Report Type: Spontaneous
  Country: US (occurrence: US)
  Receive Date: 20210203
  Receipt Date: 20210203
  Transmission Date: 20210419
  Serious: No
  Sender: FDA-Public Use
  Company Number: US-ALLERGAN-2004197US

PATIENT
  Age: 49 Year
  Sex: Female

DRUGS (4)
  1. BOTOX COSMETIC [Suspect]
     Active Substance: ONABOTULINUMTOXINA
     Indication: SKIN WRINKLING
     Dosage: UNK, SINGLE
     Dates: start: 20200123, end: 20200123
  2. BOTOX COSMETIC [Suspect]
     Active Substance: ONABOTULINUMTOXINA
     Indication: SKIN WRINKLING
     Dosage: UNK, SINGLE
  3. CRESTOR [Concomitant]
     Active Substance: ROSUVASTATIN CALCIUM
     Indication: BLOOD CHOLESTEROL INCREASED
  4. BOTOX COSMETIC [Suspect]
     Active Substance: ONABOTULINUMTOXINA
     Indication: SKIN WRINKLING

REACTIONS (7)
  - Lacrimation increased [Unknown]
  - Foreign body sensation in eyes [Unknown]
  - Off label use [Unknown]
  - Eye pain [Recovered/Resolved]
  - Ocular discomfort [Recovered/Resolved]
  - Eye swelling [Recovering/Resolving]
  - Eyelid ptosis [Recovered/Resolved]

NARRATIVE: CASE EVENT DATE: 2019
